FAERS Safety Report 10801992 (Version 1)
Quarter: 2015Q1

REPORT INFORMATION
  Report Type: Spontaneous
  Country: US (occurrence: US)
  Receive Date: 20150217
  Receipt Date: 20150217
  Transmission Date: 20150721
  Serious: Yes (Death)
  Sender: FDA-Public Use
  Company Number: US-BANPHARM-20153437

PATIENT
  Age: 66 Year
  Sex: Female

DRUGS (1)
  1. LIDOCAINE HYDROCHLORIDE UNKNOWN PRODUCT [Suspect]
     Active Substance: LIDOCAINE HYDROCHLORIDE
     Route: 051

REACTIONS (1)
  - Adverse reaction [Fatal]
